FAERS Safety Report 6831473-2 (Version None)
Quarter: 2010Q3

REPORT INFORMATION
  Report Type: 
  Country: None (occurrence: None)
  Receive Date: 20100712
  Receipt Date: 20100702
  Transmission Date: 20110219
  Serious: Yes (Hospitalization)
  Sender: FDA-Public Use
  Company Number: B0663571A

PATIENT
  Sex: Male

DRUGS (3)
  1. ZELITREX [Suspect]
     Indication: PRODUCT USED FOR UNKNOWN INDICATION
     Dosage: 1000MG TWICE PER DAY
     Route: 048
     Dates: start: 20090815, end: 20100605
  2. BACTRIM DS [Suspect]
     Indication: PRODUCT USED FOR UNKNOWN INDICATION
     Dosage: 1UNIT THREE TIMES PER WEEK
     Route: 048
     Dates: start: 20090815, end: 20100609
  3. FLECAINIDE ACETATE [Suspect]
     Indication: PRODUCT USED FOR UNKNOWN INDICATION
     Dosage: 1UNIT PER DAY
     Route: 048
     Dates: start: 20000615

REACTIONS (2)
  - RENAL FAILURE ACUTE [None]
  - TUBULOINTERSTITIAL NEPHRITIS [None]
